FAERS Safety Report 4340049-0 (Version None)
Quarter: 2004Q2

REPORT INFORMATION
  Report Type: 
  Country: None (occurrence: None)
  Receive Date: 20040416
  Receipt Date: 20040402
  Transmission Date: 20050107
  Serious: Yes (Hospitalization)
  Sender: FDA-Public Use
  Company Number: BR-ROCHE-363632

PATIENT
  Age: 55 Year
  Sex: Female
  Weight: 57.3 kg

DRUGS (20)
  1. MYCOPHENOLATE MOFETIL [Suspect]
     Route: 048
     Dates: start: 20040310, end: 20040329
  2. MYCOPHENOLATE MOFETIL [Suspect]
     Route: 048
     Dates: start: 20031212, end: 20040212
  3. MYCOPHENOLATE MOFETIL [Suspect]
     Route: 048
     Dates: start: 20040213
  4. MYCOPHENOLATE MOFETIL [Suspect]
     Route: 048
     Dates: start: 20040310, end: 20040329
  5. MYCOPHENOLATE MOFETIL [Suspect]
     Route: 048
     Dates: start: 20040331
  6. DACLIZUMAB [Suspect]
     Route: 042
     Dates: start: 20031212, end: 20031212
  7. DACLIZUMAB [Suspect]
     Dosage: 60MG ON 26 DEC 2003, 10 JAN 2004, 19 JAN 2004 AND 06 FEB 2004.
     Route: 042
     Dates: start: 20031226, end: 20040206
  8. TACROLIMUS [Suspect]
     Route: 048
     Dates: start: 20031212
  9. TACROLIMUS [Suspect]
     Route: 048
     Dates: start: 20040108
  10. TACROLIMUS [Suspect]
     Route: 048
     Dates: start: 20040112
  11. PREDNISONE [Suspect]
     Route: 048
     Dates: start: 20031212
  12. PREDNISONE [Suspect]
     Route: 048
     Dates: start: 20031220
  13. PREDNISONE [Suspect]
     Route: 048
     Dates: start: 20031226
  14. PREDNISONE [Suspect]
     Route: 048
     Dates: start: 20040105
  15. PREDNISONE [Suspect]
     Route: 048
     Dates: start: 20040114
  16. PREDNISONE [Suspect]
     Route: 048
     Dates: start: 20040122
  17. PREDNISONE [Suspect]
     Route: 048
     Dates: start: 20040304
  18. PREDNISONE [Suspect]
     Route: 048
     Dates: start: 20040310
  19. CLONIDINE [Concomitant]
     Route: 048
     Dates: start: 20031219
  20. ATENOLOL [Concomitant]
     Route: 048
     Dates: start: 20040227

REACTIONS (4)
  - DEHYDRATION [None]
  - DIARRHOEA [None]
  - GLAUCOMA [None]
  - VOMITING [None]
